FAERS Safety Report 19511678 (Version 1)
Quarter: 2021Q3

REPORT INFORMATION
  Report Type: Spontaneous
  Country: US (occurrence: US)
  Receive Date: 20210709
  Receipt Date: 20210709
  Transmission Date: 20211014
  Serious: No
  Sender: FDA-Public Use
  Company Number: US-SA-2020SA347757

PATIENT
  Age: 14 Year
  Sex: Male

DRUGS (3)
  1. DUPIXENT [Suspect]
     Active Substance: DUPILUMAB
     Indication: ECZEMA
     Dosage: 600 MG, 1X
     Route: 058
     Dates: start: 20201127, end: 20201127
  2. DUPIXENT [Suspect]
     Active Substance: DUPILUMAB
     Indication: DERMATITIS ATOPIC
     Dosage: 300 MG, QOW
     Route: 058
     Dates: start: 202012
  3. DUPIXENT [Suspect]
     Active Substance: DUPILUMAB
     Dosage: UNK, Q3W

REACTIONS (12)
  - Pruritus [Unknown]
  - Urticaria [Unknown]
  - Appendicectomy [Unknown]
  - Rash [Recovered/Resolved]
  - Dry skin [Unknown]
  - Eyelid skin dryness [Unknown]
  - Dry skin [Not Recovered/Not Resolved]
  - Headache [Not Recovered/Not Resolved]
  - Eczema [Unknown]
  - Incorrect dose administered [Unknown]
  - Dry skin [Unknown]
  - Product prescribing error [Unknown]

NARRATIVE: CASE EVENT DATE: 2020
